FAERS Safety Report 9133507 (Version 1)
Quarter: 2013Q1

REPORT INFORMATION
  Report Type: Spontaneous
  Country: US (occurrence: US)
  Receive Date: 20130128
  Receipt Date: 20130128
  Transmission Date: 20140127
  Serious: No
  Sender: FDA-Public Use
  Company Number: US-009507513-1301USA010508

PATIENT
  Age: 67 Year
  Sex: Male

DRUGS (17)
  1. SINGULAIR [Suspect]
  2. NASONEX [Concomitant]
     Dosage: 50 MICROGRAM/INH; 2 SPRAYS
     Route: 045
  3. VENLAFAXINE HYDROCHLORIDE [Concomitant]
     Dosage: 1 TABLET, BID
     Route: 048
  4. LYRICA [Concomitant]
     Dosage: 1TABLET, BID
     Route: 048
  5. ATENOLOL [Concomitant]
     Dosage: 1 TABLET, QD
     Route: 048
  6. ALBUTEROL [Concomitant]
     Dosage: INHALER CFC FREE 90 MCG/INH; AEROSOL WITH ADAPTER; 2 PUFFS INHALED 4 TIMES A DAY
     Route: 055
  7. ADVOCARE PROBIOTIC RESTORE [Concomitant]
     Dosage: 1 TABLET, PRN
  8. ZOSTAVAX [Concomitant]
  9. OXYCODONE [Concomitant]
     Dosage: 1 TABLET, QID,PRN
     Route: 048
  10. CHOLECALCIFEROL [Concomitant]
     Dosage: 2 TABLETS, QD
     Route: 048
  11. VITAMINS (UNSPECIFIED) [Concomitant]
     Dosage: 1 TABLET, QD
  12. FINASTERIDE [Concomitant]
     Dosage: 1 TABLET, QD
     Route: 048
  13. ASPIRIN [Concomitant]
     Dosage: 1 TABLET, QD
     Route: 048
  14. FLOMAX (MORNIFLUMATE) [Concomitant]
     Dosage: 1CAPSULE, QD
     Route: 048
  15. POTASSIUM CHLORIDE - USP [Concomitant]
     Dosage: 1 TABLET, WHEN TAKEN WITH LASIX
     Route: 048
  16. LASIX (FUROSEMIDE SODIUM) [Concomitant]
     Dosage: 1 TABLET, QD
     Route: 048
  17. DOXYCYCLINE [Concomitant]
     Dosage: 1 TABLET, BID
     Route: 048

REACTIONS (1)
  - Urticaria [Unknown]
